FAERS Safety Report 24533387 (Version 2)
Quarter: 2024Q4

REPORT INFORMATION
  Report Type: Spontaneous
  Country: RU (occurrence: RU)
  Receive Date: 20241022
  Receipt Date: 20241202
  Transmission Date: 20250115
  Serious: Yes (Hospitalization)
  Sender: BAYER HEALTHCARE PHARMACEUTICALS INC.
  Company Number: RU-BAYER-2024A149674

PATIENT
  Age: 50 Year
  Sex: Female
  Weight: 60 kg

DRUGS (1)
  1. MIRENA [Suspect]
     Active Substance: LEVONORGESTREL
     Indication: Endometrial hyperplasia
     Dosage: 20?G/DAY
     Route: 015
     Dates: start: 202404, end: 20241008

REACTIONS (1)
  - Erysipelas [None]

NARRATIVE: CASE EVENT DATE: 20240801
